FAERS Safety Report 24314324 (Version 2)
Quarter: 2024Q4

REPORT INFORMATION
  Report Type: Report from Study
  Country: US (occurrence: US)
  Receive Date: 20240912
  Receipt Date: 20241008
  Transmission Date: 20250115
  Serious: No
  Sender: ABBVIE
  Company Number: US-ABBVIE-5649576

PATIENT
  Sex: Female
  Weight: 122 kg

DRUGS (3)
  1. HUMIRA [Suspect]
     Active Substance: ADALIMUMAB
     Indication: Rheumatoid arthritis
     Dosage: FORM STRENGTH: 40 MG?CITRATE FREE
     Route: 058
     Dates: start: 20230811
  2. PREDNISONE [Concomitant]
     Active Substance: PREDNISONE
     Indication: Pain
  3. ELIQUIS [Concomitant]
     Active Substance: APIXABAN
     Indication: Blood pressure measurement

REACTIONS (2)
  - Neuropathy peripheral [Recovering/Resolving]
  - Chronic obstructive pulmonary disease [Unknown]
